FAERS Safety Report 5246255-5 (Version None)
Quarter: 2007Q1

REPORT INFORMATION
  Report Type: 
  Country: None (occurrence: None)
  Receive Date: 20070221
  Receipt Date: 20070208
  Transmission Date: 20070707
  Serious: Yes (Death)
  Sender: FDA-Public Use
  Company Number: DILLB-07-0138

PATIENT
  Age: 45 Year
  Sex: Female

DRUGS (10)
  1. PROPOFOL [Suspect]
     Indication: GENERAL ANAESTHESIA
     Dosage: 2 MG/KG
  2. LIDOCAINE [Suspect]
     Indication: GENERAL ANAESTHESIA
     Dosage: 1.5 MG/KG
  3. PROPRANOLOL [Suspect]
     Indication: GENERAL ANAESTHESIA
     Dosage: INCREMENTAL DOSES UP TO A TOTAL DOSE OF 2 MG, INTRAVENOUS
     Route: 042
  4. FENTANYL [Suspect]
     Indication: GENERAL ANAESTHESIA
     Dosage: 2 UG/KG
  5. ROCURONIUM (ROCURONIUM) [Suspect]
     Indication: GENERAL ANAESTHESIA
     Dosage: 0.6 MG/KG
  6. SEVOFLURANE [Concomitant]
  7. NITROUS OXIDE W/ OXYGEN [Concomitant]
  8. OXYGEN [Concomitant]
  9. NEOSTIGMINE [Concomitant]
  10. GLYCOPYRROLAT (GLYCOPYRRONIUM BROMIDE) [Concomitant]

REACTIONS (7)
  - AKINESIA [None]
  - BLOOD PRESSURE INCREASED [None]
  - BRADYCARDIA [None]
  - CARDIAC ARREST [None]
  - PHAEOCHROMOCYTOMA [None]
  - PULMONARY OEDEMA [None]
  - VENTRICULAR HYPOKINESIA [None]
